FAERS Safety Report 9304775 (Version 1)
Quarter: 2013Q2

REPORT INFORMATION
  Report Type: Spontaneous
  Country: US (occurrence: US)
  Receive Date: 20130523
  Receipt Date: 20130523
  Transmission Date: 20140414
  Serious: No
  Sender: FDA-Public Use
  Company Number: US-009507513-1305USA012665

PATIENT
  Age: 66 Year
  Sex: Male

DRUGS (5)
  1. JANUVIA [Suspect]
     Indication: DIABETES MELLITUS
     Dosage: 100 MG, QD
     Route: 048
     Dates: start: 201105
  2. RAMIPRIL [Concomitant]
  3. ZOLPIDEM TARTRATE [Concomitant]
  4. LOSARTAN POTASSIUM TABLETS [Concomitant]
  5. VITAMIN D (UNSPECIFIED) [Concomitant]
     Dosage: 50000 UNITS, QM

REACTIONS (1)
  - Hepatic enzyme abnormal [Not Recovered/Not Resolved]
